FAERS Safety Report 14338742 (Version 2)
Quarter: 2018Q1

REPORT INFORMATION
  Report Type: Other
  Country: US (occurrence: BR)
  Receive Date: 20171229
  Receipt Date: 20180115
  Transmission Date: 20180509
  Serious: Yes (Other)
  Sender: FDA-Public Use
  Company Number: US-SUNOVION-2017SUN005484

PATIENT
  Sex: Female
  Weight: 74 kg

DRUGS (1)
  1. INDACATEROL AND GLYCOPYRROLATE [Suspect]
     Active Substance: GLYCOPYRROLATE\INDACATEROL MALEATE
     Indication: ASTHMA
     Dosage: 1 DF (50 UG GLYCOPYRRONIUM BROMIDE,110 UG INDACATEROL) QD
     Route: 055

REACTIONS (3)
  - Visual impairment [Unknown]
  - Product use in unapproved indication [Not Recovered/Not Resolved]
  - Bronchiectasis [Unknown]
